FAERS Safety Report 7476780-8 (Version None)
Quarter: 2011Q2

REPORT INFORMATION
  Report Type: 
  Country: None (occurrence: None)
  Receive Date: 20110512
  Receipt Date: 20110506
  Transmission Date: 20111010
  Serious: Yes (Other)
  Sender: FDA-Public Use
  Company Number: US-PFIZER INC-2011071285

PATIENT
  Sex: Female
  Weight: 88.435 kg

DRUGS (8)
  1. LYRICA [Suspect]
     Indication: PAIN
     Dosage: 50 MG, 2X/DAY
     Route: 048
     Dates: start: 20110329
  2. MOTRIN [Concomitant]
  3. CYMBALTA [Concomitant]
  4. XANAX [Concomitant]
     Dosage: UNK
  5. ALBUTEROL [Concomitant]
     Dosage: INHALER
  6. LEXAPRO [Concomitant]
     Dosage: UNK
  7. SPIRIVA [Concomitant]
  8. LORTAB [Concomitant]
     Dosage: 7.5/500

REACTIONS (3)
  - FLUSHING [None]
  - BLOOD PRESSURE DECREASED [None]
  - HEART RATE DECREASED [None]
